FAERS Safety Report 7425156-8 (Version None)
Quarter: 2011Q2

REPORT INFORMATION
  Report Type: 
  Country: None (occurrence: None)
  Receive Date: 20110412
  Receipt Date: 20110328
  Transmission Date: 20111010
  Serious: Yes (Hospitalization)
  Sender: FDA-Public Use
  Company Number: 1000016938

PATIENT
  Age: 74 Year
  Sex: Female

DRUGS (5)
  1. VIT B12 (CYANOCOBALAMIN) (TABLETS) (CYANOCOBALAMIN) [Concomitant]
  2. ASPIRIN [Concomitant]
  3. LEXAPRO [Suspect]
     Indication: DEPRESSION
     Dosage: 15 MG (15 MG,1 IN 1 D), ORAL
     Route: 048
     Dates: start: 20100701
  4. AMLODIPINE [Concomitant]
  5. ZOTON (LANSOPRAZOLE) (TABLETS) (LANSOPRFAZOLE) [Concomitant]

REACTIONS (3)
  - PEPTIC ULCER [None]
  - MELAENA [None]
  - GASTROINTESTINAL HAEMORRHAGE [None]
